FAERS Safety Report 12059466 (Version 1)
Quarter: 2016Q1

REPORT INFORMATION
  Report Type: Spontaneous
  Country: US (occurrence: US)
  Receive Date: 20160210
  Receipt Date: 20160210
  Transmission Date: 20160526
  Serious: No
  Sender: FDA-Public Use
  Company Number: US-BAYER-2016-025798

PATIENT
  Age: 76 Year
  Sex: Female
  Weight: 61.22 kg

DRUGS (1)
  1. MIRALAX [Suspect]
     Active Substance: POLYETHYLENE GLYCOL 3350
     Dosage: 1 DF, BID
     Route: 048
     Dates: start: 2013

REACTIONS (1)
  - Product use issue [None]
